FAERS Safety Report 7451338-5 (Version None)
Quarter: 2011Q2

REPORT INFORMATION
  Report Type: 
  Country: None (occurrence: None)
  Receive Date: 20110502
  Receipt Date: 20110428
  Transmission Date: 20111010
  Serious: Yes (Death)
  Sender: FDA-Public Use
  Company Number: FR-B.I. PHARMACEUTICALS,INC./RIDGEFIELD-2011-FF-00257FF

PATIENT
  Sex: Female

DRUGS (17)
  1. ART 50 [Suspect]
     Indication: OSTEOARTHRITIS
     Dosage: 100 MG
     Route: 048
     Dates: end: 20110301
  2. LOVENOX [Suspect]
     Indication: THROMBOSIS PROPHYLAXIS
     Dosage: 4000 U
     Route: 058
     Dates: start: 20110222, end: 20110222
  3. PERFALGAN [Suspect]
     Indication: ARTHRALGIA
     Dosage: 4 G
     Route: 042
     Dates: start: 20110222, end: 20110223
  4. INIPOMP [Suspect]
     Dosage: 40 MG
     Route: 048
     Dates: end: 20110301
  5. TOPALGIC [Suspect]
     Dosage: 150 MG
     Route: 048
     Dates: start: 20110225, end: 20110301
  6. CELIPROLOL ARROW [Suspect]
     Indication: HYPERTENSION
     Dosage: 200 MG
     Route: 048
     Dates: end: 20110301
  7. XYZAL [Suspect]
     Dosage: 10 MG
     Route: 048
     Dates: end: 20110301
  8. NISISCO [Suspect]
     Indication: HYPERTENSION
     Dosage: 160 MG/25 MG
     Route: 048
     Dates: end: 20110301
  9. EUPRESSYL [Suspect]
     Indication: HYPERTENSION
     Dosage: 120 MG
     Route: 048
     Dates: end: 20110301
  10. HYDERGINE [Suspect]
     Dosage: 4.5 MG
     Route: 048
     Dates: end: 20110301
  11. DAFALGAN [Suspect]
     Indication: ARTHRALGIA
     Dosage: 3 G
     Route: 048
     Dates: start: 20110224, end: 20110301
  12. LASILIX RETARD [Suspect]
     Indication: HYPERTENSION
     Dosage: 60 MG
     Route: 048
     Dates: end: 20110301
  13. XANAX [Suspect]
     Indication: ANXIETY
     Dosage: 0.5 MG
     Route: 048
     Dates: end: 20110301
  14. PRADAXA [Suspect]
     Indication: KNEE ARTHROPLASTY
     Dosage: 220 MG
     Route: 048
     Dates: start: 20110223, end: 20110228
  15. TARDYFERON [Suspect]
     Indication: ANAEMIA
     Route: 048
     Dates: start: 20110223, end: 20110301
  16. PRADAXA [Suspect]
     Indication: THROMBOSIS PROPHYLAXIS
  17. TOPALGIC [Suspect]
     Indication: ARTHRALGIA
     Dosage: 300 MG
     Route: 042
     Dates: start: 20110222, end: 20110223

REACTIONS (2)
  - HAEMOGLOBIN DECREASED [None]
  - SUDDEN DEATH [None]
